FAERS Safety Report 6262934-5 (Version None)
Quarter: 2009Q3

REPORT INFORMATION
  Report Type: 
  Country: None (occurrence: None)
  Receive Date: 20090708
  Receipt Date: 20090622
  Transmission Date: 20100115
  Serious: Yes (Other)
  Sender: FDA-Public Use
  Company Number: 2009BI020067

PATIENT
  Age: 58 Year

DRUGS (4)
  1. ZEVALIN [Suspect]
     Indication: NON-HODGKIN'S LYMPHOMA
  2. ZEVALIN [Suspect]
     Indication: STEM CELL TRANSPLANT
  3. FLUDARABINE (CON.) [Concomitant]
  4. CYCLOSPORIN A (CON.) [Concomitant]

REACTIONS (6)
  - ACUTE PRERENAL FAILURE [None]
  - C-REACTIVE PROTEIN INCREASED [None]
  - CYTOMEGALOVIRUS INFECTION [None]
  - DIARRHOEA [None]
  - PANCYTOPENIA [None]
  - PYREXIA [None]
